FAERS Safety Report 7518441-2 (Version None)
Quarter: 2011Q2

REPORT INFORMATION
  Report Type: 
  Country: None (occurrence: None)
  Receive Date: 20110601
  Receipt Date: 20110601
  Transmission Date: 20111010
  Serious: No
  Sender: FDA-Public Use
  Company Number: None

PATIENT
  Age: 69 Year
  Sex: Female
  Weight: 55.3388 kg

DRUGS (1)
  1. ARIMIDEX [Suspect]
     Dosage: 1 DAILY

REACTIONS (1)
  - ALOPECIA [None]
